FAERS Safety Report 7938316-4 (Version None)
Quarter: 2011Q4

REPORT INFORMATION
  Report Type: 
  Country: None (occurrence: None)
  Receive Date: 20111123
  Receipt Date: 20110919
  Transmission Date: 20120403
  Serious: Yes (Other)
  Sender: FDA-Public Use
  Company Number: US-GLAXOSMITHKLINE-A0945173A

PATIENT
  Sex: Female

DRUGS (2)
  1. ARZERRA [Suspect]
     Indication: PRODUCT USED FOR UNKNOWN INDICATION
  2. NO CONCURRENT MEDICATION [Concomitant]

REACTIONS (1)
  - NEUTROPENIA [None]
